FAERS Safety Report 8511740-7 (Version None)
Quarter: 2012Q3

REPORT INFORMATION
  Report Type: 
  Country: None (occurrence: None)
  Receive Date: 20120716
  Receipt Date: 20120709
  Transmission Date: 20120928
  Serious: Yes (Hospitalization)
  Sender: FDA-Public Use
  Company Number: US-UCBSA-060347

PATIENT
  Age: 16 Year
  Sex: Female

DRUGS (2)
  1. CIMZIA [Suspect]
     Dosage: MAINTENANCE DOSE
     Dates: start: 20120101, end: 20120101
  2. CIMZIA [Suspect]
     Indication: CROHN'S DISEASE
     Dosage: 0,2,4 INITIAL DOSE
     Dates: start: 20120419, end: 20120101

REACTIONS (2)
  - ABSCESS [None]
  - MALAISE [None]
